FAERS Safety Report 26164151 (Version 2)
Quarter: 2025Q4

REPORT INFORMATION
  Report Type: Report from Study
  Country: US (occurrence: US)
  Receive Date: 20251216
  Receipt Date: 20251224
  Transmission Date: 20260118
  Serious: No
  Sender: SANOFI AVENTIS
  Company Number: US-SA-2025SA366969

PATIENT
  Age: 78 Year
  Sex: Female
  Weight: 68.03 kg

DRUGS (2)
  1. WAYRILZ [Suspect]
     Active Substance: RILZABRUTINIB
     Indication: Chronic myelomonocytic leukaemia
     Dosage: 400 MG, BID
     Route: 048
     Dates: start: 20251118
  2. WAYRILZ [Suspect]
     Active Substance: RILZABRUTINIB
     Indication: Immune thrombocytopenia

REACTIONS (5)
  - Oropharyngeal pain [Not Recovered/Not Resolved]
  - Headache [Recovered/Resolved]
  - Cough [Not Recovered/Not Resolved]
  - Nasopharyngitis [Not Recovered/Not Resolved]
  - Product use in unapproved indication [Unknown]

NARRATIVE: CASE EVENT DATE: 20250101
